FAERS Safety Report 24550623 (Version 1)
Quarter: 2024Q4

REPORT INFORMATION
  Report Type: Spontaneous
  Country: US (occurrence: US)
  Receive Date: 20241025
  Receipt Date: 20241025
  Transmission Date: 20250115
  Serious: No
  Sender: BRISTOL-MYERS SQUIBB COMPANY
  Company Number: US-BRISTOL-MYERS SQUIBB COMPANY-2024-168253

PATIENT
  Age: 90 Year
  Sex: Female
  Weight: 66.22 kg

DRUGS (1)
  1. SPRYCEL [Suspect]
     Active Substance: DASATINIB
     Indication: Chronic myeloid leukaemia
     Dosage: DOSE : 20 MG;     FREQ : QD
     Route: 048

REACTIONS (2)
  - Cardiac disorder [Unknown]
  - Renal disorder [Unknown]
